FAERS Safety Report 4351510-7 (Version None)
Quarter: 2004Q2

REPORT INFORMATION
  Report Type: 
  Country: None (occurrence: None)
  Receive Date: 20040428
  Receipt Date: 20040412
  Transmission Date: 20050107
  Serious: Yes (Hospitalization, Other)
  Sender: FDA-Public Use
  Company Number: USA030331889

PATIENT
  Age: 67 Year
  Sex: Female
  Weight: 80 kg

DRUGS (13)
  1. FORTEO [Suspect]
     Indication: OSTEOPOROSIS
     Dosage: 20 UG/1DAY
     Dates: start: 20030301
  2. ADVAIR DISKUS 100/50 [Concomitant]
  3. CARDIZEM CD [Concomitant]
  4. ESTRACE [Concomitant]
  5. MIACALCIN [Concomitant]
  6. NEXIUM [Concomitant]
  7. POSTURE-D [Concomitant]
  8. PROVENTIL [Concomitant]
  9. RHINOCORT AQUA (BUDESONIDE) [Concomitant]
  10. SINGULAIR [Concomitant]
  11. ULTRAM [Concomitant]
  12. ZANTAC [Concomitant]
  13. ZYRTEC [Concomitant]

REACTIONS (8)
  - CHOLELITHIASIS [None]
  - CONSTIPATION [None]
  - GASTROOESOPHAGEAL REFLUX DISEASE [None]
  - HIATUS HERNIA [None]
  - INJECTION SITE ERYTHEMA [None]
  - INJECTION SITE HAEMORRHAGE [None]
  - INTESTINAL FUNCTIONAL DISORDER [None]
  - NEPHROLITHIASIS [None]
